FAERS Safety Report 9470845 (Version 1)
Quarter: 2013Q3

REPORT INFORMATION
  Report Type: Spontaneous
  Country: US (occurrence: None)
  Receive Date: 20130820
  Receipt Date: 20130820
  Transmission Date: 20140515
  Serious: Yes (Disabling)
  Sender: FDA-Public Use
  Company Number: None

PATIENT
  Age: 70 Year
  Sex: Female
  Weight: 74.84 kg

DRUGS (8)
  1. PLAVIX [Suspect]
     Indication: ANTICOAGULANT THERAPY
     Route: 048
     Dates: start: 20130702, end: 20130718
  2. BUSPIRONE [Concomitant]
  3. TEMEZEPAM [Concomitant]
  4. ALLERTEC (GENERIC ZRYTEC) [Concomitant]
  5. CALCIUM [Concomitant]
  6. VIT D [Concomitant]
  7. VIT C [Concomitant]
  8. FISHOIL [Concomitant]

REACTIONS (5)
  - Pain in extremity [None]
  - Joint swelling [None]
  - Joint warmth [None]
  - Abasia [None]
  - Inflammation [None]
